FAERS Safety Report 16951457 (Version 1)
Quarter: 2019Q4

REPORT INFORMATION
  Report Type: Spontaneous
  Country: US (occurrence: US)
  Receive Date: 20190903
  Receipt Date: 20190903
  Transmission Date: 20200122
  Serious: Yes (Hospitalization)
  Sender: FDA-Public Use
  Company Number: None

PATIENT
  Age: 64 Year
  Sex: Female

DRUGS (26)
  1. ASPIRIN. [Concomitant]
     Active Substance: ASPIRIN
  2. CENTRUM [Concomitant]
     Active Substance: VITAMINS
  3. VITAMIN B12 [Concomitant]
     Active Substance: CYANOCOBALAMIN
  4. CIPRO [Concomitant]
     Active Substance: CIPROFLOXACIN HYDROCHLORIDE
  5. FOLIC ACID TAB [Concomitant]
  6. LAMICTAL ODT [Concomitant]
     Active Substance: LAMOTRIGINE
  7. PROTONIX [Concomitant]
     Active Substance: PANTOPRAZOLE SODIUM
  8. ALDACTONE [Concomitant]
     Active Substance: SPIRONOLACTONE
  9. AUGMENTIN [Concomitant]
     Active Substance: AMOXICILLIN\CLAVULANATE POTASSIUM
  10. BD NEEDLES [Concomitant]
  11. INSULIN SYRG MIS [Concomitant]
  12. IRON [Concomitant]
     Active Substance: IRON
  13. LASIX [Concomitant]
     Active Substance: FUROSEMIDE
  14. LOTRISONE [Concomitant]
     Active Substance: BETAMETHASONE DIPROPIONATE\CLOTRIMAZOLE
  15. PRAVASTATIN TAB [Concomitant]
     Active Substance: PRAVASTATIN
  16. OCTREOTIDE. [Suspect]
     Active Substance: OCTREOTIDE
  17. FELDENE CAP [Concomitant]
  18. LANTUS [Suspect]
     Active Substance: INSULIN GLARGINE
  19. PAXIL [Concomitant]
     Active Substance: PAROXETINE HYDROCHLORIDE
  20. ALLOPURINOL. [Concomitant]
     Active Substance: ALLOPURINOL
  21. CALCIUM 600 [Concomitant]
     Active Substance: CALCIUM
  22. HYDROCO/APAP TAB [Concomitant]
  23. OMEGA 3 [Concomitant]
     Active Substance: OMEGA-3 FATTY ACIDS
  24. OCTREOTIDE. [Suspect]
     Active Substance: OCTREOTIDE
     Route: 058
     Dates: start: 20181212
  25. EXEMESTANE TAB [Concomitant]
  26. LISINOPRIL. [Concomitant]
     Active Substance: LISINOPRIL

REACTIONS (1)
  - Hospitalisation [None]

NARRATIVE: CASE EVENT DATE: 20190716
